FAERS Safety Report 15576813 (Version 1)
Quarter: 2018Q4

REPORT INFORMATION
  Report Type: Spontaneous
  Country: HU (occurrence: HU)
  Receive Date: 20181101
  Receipt Date: 20181101
  Transmission Date: 20190205
  Serious: Yes (Death, Other)
  Sender: FDA-Public Use
  Company Number: HU-GLAXOSMITHKLINE-HU2018GSK125877

PATIENT

DRUGS (2)
  1. CATAFLAM DOLO RAPID [Suspect]
     Active Substance: DICLOFENAC POTASSIUM
     Indication: BACK PAIN
     Dosage: UNK
  2. CATAFLAM DOLO RAPID [Suspect]
     Active Substance: DICLOFENAC POTASSIUM
     Indication: PAIN IN EXTREMITY

REACTIONS (2)
  - Overdose [Fatal]
  - Gastric haemorrhage [Fatal]
